FAERS Safety Report 15766544 (Version 1)
Quarter: 2018Q4

REPORT INFORMATION
  Report Type: Spontaneous
  Country: ES (occurrence: ES)
  Receive Date: 20181227
  Receipt Date: 20181227
  Transmission Date: 20190205
  Serious: Yes (Death, Hospitalization)
  Sender: FDA-Public Use
  Company Number: ES-MYLANLABS-2018M1094786

PATIENT
  Age: 77 Year
  Sex: Female

DRUGS (5)
  1. SIMVASTATIN. [Concomitant]
     Active Substance: SIMVASTATIN
     Indication: HYPERCHOLESTEROLAEMIA
     Route: 065
  2. OXALIPLATIN. [Concomitant]
     Active Substance: OXALIPLATIN
     Indication: COLORECTAL CANCER
     Dosage: ON DAY 1
     Route: 058
  3. METFORMIN [Concomitant]
     Active Substance: METFORMIN HYDROCHLORIDE
     Indication: DIABETES MELLITUS
     Route: 065
  4. CAPECITABINE. [Suspect]
     Active Substance: CAPECITABINE
     Indication: COLORECTAL CANCER
     Dosage: ON DAYS 1-14
     Route: 065
  5. ENALAPRIL [Concomitant]
     Active Substance: ENALAPRIL
     Indication: HYPERTENSION
     Route: 065

REACTIONS (14)
  - Palmoplantar keratoderma [Fatal]
  - Klebsiella infection [Fatal]
  - Acute kidney injury [Recovering/Resolving]
  - Atrial fibrillation [Not Recovered/Not Resolved]
  - Enterobacter infection [Fatal]
  - Pneumonia necrotising [Fatal]
  - Aspergillus infection [Fatal]
  - Mucosal inflammation [Fatal]
  - Septic shock [Fatal]
  - Pseudomonas infection [Fatal]
  - Diarrhoea [Not Recovered/Not Resolved]
  - Vomiting [Not Recovered/Not Resolved]
  - Candida infection [Fatal]
  - Asthenia [Not Recovered/Not Resolved]
